FAERS Safety Report 15481515 (Version 2)
Quarter: 2019Q2

REPORT INFORMATION
  Report Type: Spontaneous
  Country: US (occurrence: US)
  Receive Date: 20181010
  Receipt Date: 20190531
  Transmission Date: 20190711
  Serious: No
  Sender: FDA-Public Use
  Company Number: US-SHIRE-US201837465

PATIENT
  Sex: Female

DRUGS (1)
  1. XIIDRA [Suspect]
     Active Substance: LIFITEGRAST
     Indication: DRY EYE
     Dosage: 1 GTT, 2X/DAY:BID
     Route: 047

REACTIONS (5)
  - Inappropriate schedule of product administration [Unknown]
  - Instillation site lacrimation [Unknown]
  - Vision blurred [Unknown]
  - Instillation site reaction [Unknown]
  - Product container issue [Unknown]
